FAERS Safety Report 8562684-6 (Version None)
Quarter: 2012Q3

REPORT INFORMATION
  Report Type: 
  Country: None (occurrence: None)
  Receive Date: 20120802
  Receipt Date: 20120719
  Transmission Date: 20120928
  Serious: Yes (Hospitalization)
  Sender: FDA-Public Use
  Company Number: PT-WATSON-2012-12989

PATIENT
  Age: 22 Year
  Sex: Female

DRUGS (1)
  1. IBUPROFEN [Suspect]
     Indication: HEADACHE
     Dosage: 400 MG, SINGLE
     Route: 048

REACTIONS (2)
  - CARDIAC ANEURYSM [None]
  - KOUNIS SYNDROME [None]
